FAERS Safety Report 20753127 (Version 1)
Quarter: 2022Q2

REPORT INFORMATION
  Report Type: Spontaneous
  Country: US (occurrence: None)
  Receive Date: 20220426
  Receipt Date: 20220426
  Transmission Date: 20220721
  Serious: No
  Sender: FDA-Public Use
  Company Number: US-ROCHE-3007142

PATIENT
  Sex: Female

DRUGS (1)
  1. ESBRIET [Suspect]
     Active Substance: PIRFENIDONE
     Indication: Idiopathic pulmonary fibrosis
     Route: 048
     Dates: start: 20181025

REACTIONS (6)
  - Fatigue [Unknown]
  - Nausea [Unknown]
  - Constipation [Unknown]
  - Fatigue [Unknown]
  - Abdominal distension [Unknown]
  - Blood sodium decreased [Unknown]
